FAERS Safety Report 9034879 (Version 1)
Quarter: 2013Q1

REPORT INFORMATION
  Report Type: Spontaneous
  Country: DE (occurrence: DE)
  Receive Date: 20130128
  Receipt Date: 20130128
  Transmission Date: 20140127
  Serious: Yes (Other)
  Sender: FDA-Public Use
  Company Number: DE-ASTRAZENECA-2013SE04555

PATIENT
  Age: 321 Month
  Sex: Male

DRUGS (4)
  1. SEROQUEL [Suspect]
     Route: 048
     Dates: start: 2009, end: 201301
  2. SEROQUEL [Suspect]
     Dosage: 50 MG IN THE EVENING AND 25 MG FOR THE NIGHT
     Route: 048
     Dates: start: 201301
  3. PAROXETIN [Concomitant]
     Dosage: IN THE MORNING
  4. NOVALGIN [Concomitant]
     Indication: HEADACHE

REACTIONS (8)
  - Epilepsy [Unknown]
  - Headache [Unknown]
  - Nausea [Unknown]
  - Insomnia [Unknown]
  - Eye disorder [Unknown]
  - Feeling hot [Unknown]
  - Sensation of heaviness [Unknown]
  - Off label use [Unknown]
